FAERS Safety Report 10596149 (Version 2)
Quarter: 2014Q4

REPORT INFORMATION
  Report Type: Spontaneous
  Country: TR (occurrence: TR)
  Receive Date: 20141120
  Receipt Date: 20141120
  Transmission Date: 20150529
  Serious: Yes (Death, Other)
  Sender: FDA-Public Use
  Company Number: TR-MERCK-1404TUR009844

PATIENT
  Age: 53 Year
  Sex: Male
  Weight: 83 kg

DRUGS (6)
  1. LEVETIRACETAM. [Concomitant]
     Active Substance: LEVETIRACETAM
     Indication: PROPHYLAXIS
     Dosage: 1000 MG, BID
     Route: 048
     Dates: start: 20140104
  2. DEKORT [Concomitant]
     Active Substance: DEXAMETHASONE
     Indication: OEDEMA
     Dosage: TOTAL DAILY DOSE 0.75 MG, FREQUENCY ONCE IN A DAY
     Route: 048
     Dates: start: 20140221, end: 20140414
  3. TEMODAL [Suspect]
     Active Substance: TEMOZOLOMIDE
     Indication: GLIOBLASTOMA MULTIFORME
     Dosage: 75 MG/M2, UNK
     Route: 048
     Dates: start: 20140305, end: 20140415
  4. TEMODAL [Suspect]
     Active Substance: TEMOZOLOMIDE
     Dosage: 125 MG/M2, UNK
     Route: 048
     Dates: start: 20140603
  5. TEMODAL [Suspect]
     Active Substance: TEMOZOLOMIDE
     Dosage: 150 MG, QD
     Route: 048
     Dates: start: 20140817, end: 20140821
  6. TEMODAL [Suspect]
     Active Substance: TEMOZOLOMIDE
     Dosage: 400 MG/5 DAYS, ONCE IN EVERY 28 DAYS AFTER RADIOTHERAPY
     Route: 048
     Dates: start: 2014, end: 2014

REACTIONS (2)
  - Hepatic failure [Unknown]
  - Cardio-respiratory arrest [Fatal]

NARRATIVE: CASE EVENT DATE: 20140414
